FAERS Safety Report 7961957 (Version 5)
Quarter: 2023Q4

REPORT INFORMATION
  Report Type: Spontaneous
  Country: US (occurrence: US)
  Receive Date: 20110526
  Receipt Date: 20231202
  Transmission Date: 20240110
  Serious: Yes (Hospitalization)
  Sender: FDA-Public Use
  Company Number: US-BAYER-2011-044929

PATIENT
  Age: 28 Year
  Sex: Female
  Weight: 108.84 kg

DRUGS (1)
  1. YASMIN [Suspect]
     Active Substance: DROSPIRENONE\ETHINYL ESTRADIOL
     Indication: Contraception
     Dosage: UNK
     Route: 048
     Dates: start: 200204, end: 200701

REACTIONS (9)
  - Deep vein thrombosis [None]
  - Injury [None]
  - Pain [None]
  - Anxiety [None]
  - Anhedonia [None]
  - Fear [None]
  - Psychological trauma [None]
  - Pain in extremity [None]
  - Gait inability [None]

NARRATIVE: CASE EVENT DATE: 20070123
